FAERS Safety Report 8715664 (Version 3)
Quarter: 2012Q4

REPORT INFORMATION
  Report Type: Report from Study
  Country: JP (occurrence: JP)
  Receive Date: 20120809
  Receipt Date: 20120829
  Transmission Date: 20130627
  Serious: Yes (Death, Other)
  Sender: FDA-Public Use
  Company Number: JP-ROCHE-1098356

PATIENT
  Age: 78 Year
  Sex: Male

DRUGS (7)
  1. AVASTIN [Suspect]
     Indication: LUNG ADENOCARCINOMA METASTATIC
     Route: 041
     Dates: start: 20120305, end: 20120507
  2. AVASTIN [Suspect]
     Indication: LUNG ADENOCARCINOMA METASTATIC
     Dosage: Dosage is uncertain.
     Route: 041
     Dates: start: 20120611, end: 20120709
  3. CARBOPLATIN [Concomitant]
     Indication: LUNG ADENOCARCINOMA METASTATIC
     Dosage: Dosage is uncertain.
     Route: 041
     Dates: start: 20120305, end: 20120507
  4. ALIMTA [Concomitant]
     Indication: LUNG ADENOCARCINOMA METASTATIC
     Dosage: Dosage is uncertain.
     Route: 041
     Dates: start: 20120305, end: 20120507
  5. ALIMTA [Concomitant]
     Indication: LUNG ADENOCARCINOMA METASTATIC
     Dosage: Dosage is uncertain.
     Route: 041
     Dates: start: 20120611, end: 20120709
  6. ADALAT CR [Concomitant]
     Route: 048
  7. ANPLAG [Concomitant]
     Route: 048

REACTIONS (10)
  - Interstitial lung disease [Fatal]
  - Platelet count decreased [Unknown]
  - Haemoglobin decreased [Unknown]
  - Cancer pain [Unknown]
  - Platelet count decreased [Unknown]
  - Liver disorder [Unknown]
  - Renal disorder [Unknown]
  - Respiratory failure [Fatal]
  - Pulmonary fibrosis [Fatal]
  - Blood bilirubin increased [Unknown]
